FAERS Safety Report 9789808 (Version 1)
Quarter: 2013Q4

REPORT INFORMATION
  Report Type: Spontaneous
  Country: FR (occurrence: None)
  Receive Date: 20131227
  Receipt Date: 20131227
  Transmission Date: 20140711
  Serious: Yes (Life-Threatening)
  Sender: FDA-Public Use
  Company Number: 1956278

PATIENT
  Age: 49 Year
  Sex: Male

DRUGS (8)
  1. ATRACURIUM BESILATE [Suspect]
     Indication: PRODUCT USED FOR UNKNOWN INDICATION
     Route: 042
     Dates: start: 20100820, end: 20100820
  2. CEFTRIAXONE [Suspect]
     Indication: PRODUCT USED FOR UNKNOWN INDICATION
     Route: 042
     Dates: start: 20100820, end: 20100820
  3. DESFLURANE [Suspect]
     Indication: PRODUCT USED FOR UNKNOWN INDICATION
     Dosage: RESPIRATORY
     Dates: start: 20100820, end: 20100820
  4. MIDAZOLAM [Suspect]
     Indication: PRODUCT USED FOR UNKNOWN INDICATION
     Route: 042
     Dates: start: 20100820, end: 20100820
  5. DIPRIVAN [Suspect]
     Indication: PRODUCT USED FOR UNKNOWN INDICATION
     Route: 042
     Dates: start: 20100820, end: 20100820
  6. SUFENTA [Suspect]
     Indication: PRODUCT USED FOR UNKNOWN INDICATION
     Route: 042
     Dates: start: 20100820, end: 20100820
  7. SOLUMEDROL [Suspect]
     Indication: PRODUCT USED FOR UNKNOWN INDICATION
     Route: 042
     Dates: start: 20100820, end: 20100820
  8. NACL [Suspect]
     Indication: PRODUCT USED FOR UNKNOWN INDICATION
     Route: 042
     Dates: start: 20100820

REACTIONS (4)
  - Cardiac arrest [None]
  - Bradycardia [None]
  - Heart rate increased [None]
  - Ventricular fibrillation [None]
